FAERS Safety Report 5811450-0 (Version None)
Quarter: 2008Q3

REPORT INFORMATION
  Report Type: 
  Country: None (occurrence: None)
  Receive Date: 20080711
  Receipt Date: 20080703
  Transmission Date: 20090109
  Serious: Yes (Hospitalization)
  Sender: FDA-Public Use
  Company Number: 2008-01667

PATIENT
  Age: 65 Year
  Sex: Male
  Weight: 71.5 kg

DRUGS (5)
  1. VELCADE [Suspect]
     Indication: MULTIPLE MYELOMA
     Dosage: 2.24 MG, INTRAVENOUS
     Route: 042
     Dates: start: 20080429, end: 20080509
  2. THALIDOMIDE [Suspect]
     Indication: MULTIPLE MYELOMA
     Dosage: 200 MG, ORAL
     Route: 048
     Dates: start: 20080429, end: 20080520
  3. DEXAMETHASONE TAB [Suspect]
     Indication: MULTIPLE MYELOMA
     Dosage: 40 MG, ORAL
     Route: 048
     Dates: start: 20080429, end: 20080502
  4. PAMIDRONATE DISODIUM (PAMIDRONATE SODIUM) [Concomitant]
  5. ACIC (ACICLOVIR) [Concomitant]

REACTIONS (7)
  - COORDINATION ABNORMAL [None]
  - DIPLOPIA [None]
  - HEADACHE [None]
  - HYPERTENSION [None]
  - MUSCULAR WEAKNESS [None]
  - NEUROLOGICAL SYMPTOM [None]
  - PARAESTHESIA [None]
